FAERS Safety Report 12383419 (Version 1)
Quarter: 2016Q2

REPORT INFORMATION
  Report Type: Spontaneous
  Country: CA (occurrence: CA)
  Receive Date: 20160518
  Receipt Date: 20160518
  Transmission Date: 20160815
  Serious: Yes (Other)
  Sender: FDA-Public Use
  Company Number: CA-ALLERGAN-1656944US

PATIENT
  Sex: Female

DRUGS (2)
  1. KETAMINE [Concomitant]
     Active Substance: KETAMINE
  2. BOTOX [Suspect]
     Active Substance: ONABOTULINUMTOXINA
     Indication: MIGRAINE
     Dosage: UNK UNK, SINGLE
     Route: 030

REACTIONS (3)
  - Asthma [Unknown]
  - Angioedema [Recovered/Resolved]
  - Lip swelling [Unknown]
